FAERS Safety Report 4299389-6 (Version None)
Quarter: 2004Q1

REPORT INFORMATION
  Report Type: 
  Country: None (occurrence: None)
  Receive Date: 20040217
  Receipt Date: 20040203
  Transmission Date: 20041129
  Serious: Yes (Hospitalization)
  Sender: FDA-Public Use
  Company Number: 03P-062-0238036-00

PATIENT
  Age: 47 Year
  Sex: Male
  Weight: 188 kg

DRUGS (8)
  1. HUMIRA [Suspect]
     Indication: RHEUMATOID ARTHRITIS
     Dosage: 1 IN 2 WK, SUBCUTANEOUS
     Route: 058
     Dates: start: 20030224, end: 20031021
  2. METHOTREXATE [Concomitant]
  3. CALCIUM FOLINATE [Concomitant]
  4. METHYLPREDNISOLONE [Concomitant]
  5. OSTEOPLUS [Concomitant]
  6. ALLOPURINOL [Concomitant]
  7. ACETAMINOPHEN W/ CODEINE [Concomitant]
  8. TOCOPHEROL CONCENTRATE CAP [Concomitant]

REACTIONS (13)
  - ARTHRALGIA [None]
  - ASTHENIA [None]
  - DISSOCIATION [None]
  - DISTURBANCE IN ATTENTION [None]
  - ILLUSION [None]
  - IRRITABILITY [None]
  - JOINT SWELLING [None]
  - MANIA [None]
  - PERSECUTORY DELUSION [None]
  - PSYCHOTIC DISORDER [None]
  - RALES [None]
  - SENSORY DISTURBANCE [None]
  - URTICARIA [None]
